FAERS Safety Report 6007326-9 (Version None)
Quarter: 2008Q4

REPORT INFORMATION
  Report Type: 
  Country: None (occurrence: None)
  Receive Date: 20081217
  Receipt Date: 20080310
  Transmission Date: 20090506
  Serious: No
  Sender: FDA-Public Use
  Company Number: US-ASTRAZENECA-2008UW04834

PATIENT
  Age: 67 Year
  Sex: Male

DRUGS (6)
  1. CRESTOR [Suspect]
     Route: 048
  2. EXCEDRIN (MIGRAINE) [Suspect]
     Indication: MYALGIA
     Dosage: 1 DF, TID, ORAL
     Route: 048
     Dates: start: 20080222
  3. PLAVIX [Concomitant]
  4. CLARITIN [Concomitant]
  5. ASPIRIN [Concomitant]
  6. NIASPAN [Concomitant]

REACTIONS (2)
  - BLOOD URINE PRESENT [None]
  - MYALGIA [None]
